FAERS Safety Report 11695641 (Version 11)
Quarter: 2016Q1

REPORT INFORMATION
  Report Type: Report from Study
  Country: JP (occurrence: JP)
  Receive Date: 20151104
  Receipt Date: 20160205
  Transmission Date: 20160525
  Serious: Yes (Hospitalization)
  Sender: FDA-Public Use
  Company Number: JP-ROCHE-1654310

PATIENT
  Age: 59 Year
  Sex: Female
  Weight: 42 kg

DRUGS (34)
  1. PERTUZUMAB [Suspect]
     Active Substance: PERTUZUMAB
     Dosage: MAINTENANCE DOSE?MOST RECENT DOSE PRIOR TO SERIOUS ADVERSE EVENT: 15/DEC/2015
     Route: 042
  2. 5-FLUOROURACIL [Suspect]
     Active Substance: FLUOROURACIL
     Indication: HER-2 POSITIVE BREAST CANCER
     Route: 065
     Dates: start: 20150225
  3. BARACLUDE [Concomitant]
     Active Substance: ENTECAVIR
     Indication: HEPATITIS B
  4. BROTIZOLAM [Concomitant]
     Active Substance: BROTIZOLAM
     Indication: INSOMNIA
  5. ALOXI [Concomitant]
     Active Substance: PALONOSETRON HYDROCHLORIDE
     Indication: PREMEDICATION
     Route: 065
     Dates: start: 20150722
  6. DEXART [Concomitant]
     Active Substance: DEXAMETHASONE SODIUM PHOSPHATE
     Indication: PREMEDICATION
     Route: 065
     Dates: start: 20150722
  7. KENALOG (JAPAN) [Concomitant]
     Indication: STOMATITIS
     Route: 065
     Dates: start: 20150728
  8. LANSOPRAZOLE. [Concomitant]
     Active Substance: LANSOPRAZOLE
     Indication: ABDOMINAL DISCOMFORT
     Route: 065
     Dates: start: 20150924, end: 20151123
  9. RESTAMIN [Concomitant]
     Active Substance: DIPHENHYDRAMINE
     Indication: PREMEDICATION
     Route: 065
     Dates: start: 20150722
  10. EPIRUBICIN [Suspect]
     Active Substance: EPIRUBICIN
     Indication: HER-2 POSITIVE BREAST CANCER
     Route: 065
     Dates: start: 20150225
  11. AZ COMBINATION FINE GRANULES FOR GARGLE [Concomitant]
     Indication: STOMATITIS
     Route: 065
     Dates: start: 20150310, end: 20151124
  12. LOXOPROFEN [Concomitant]
     Active Substance: LOXOPROFEN
     Indication: MYALGIA
     Route: 065
     Dates: start: 20150728
  13. TERRA CORTRIL (JAPAN) [Concomitant]
     Indication: NAIL DISORDER
     Route: 065
     Dates: start: 20160121
  14. TRASTUZUMAB EMTANSINE [Suspect]
     Active Substance: ADO-TRASTUZUMAB EMTANSINE
     Indication: HER-2 POSITIVE BREAST CANCER
     Route: 042
     Dates: start: 20150520
  15. POSTERISAN FORTE [Concomitant]
     Active Substance: LIDOCAINE
     Indication: HAEMORRHOIDS
     Route: 065
     Dates: start: 20150514
  16. XYLOCAINE VISCOUS [Concomitant]
     Active Substance: LIDOCAINE HYDROCHLORIDE
     Indication: STOMATITIS
     Route: 065
     Dates: start: 20150728
  17. PERTUZUMAB [Suspect]
     Active Substance: PERTUZUMAB
     Indication: HER-2 POSITIVE BREAST CANCER
     Dosage: LOADING DOSE
     Route: 042
     Dates: start: 20150520
  18. CYCLOPHOSPHAMIDE. [Suspect]
     Active Substance: CYCLOPHOSPHAMIDE
     Indication: HER-2 POSITIVE BREAST CANCER
     Route: 065
     Dates: start: 20150225
  19. HOCHUEKKITO [Concomitant]
     Active Substance: HERBALS
     Indication: MALAISE
     Route: 065
     Dates: start: 20150702
  20. RESTAMIN A KOWA [Concomitant]
     Indication: RASH
     Route: 065
     Dates: start: 20150728
  21. CP COMBINATION GRANULES [Concomitant]
     Indication: PIGMENTATION DISORDER
     Route: 065
     Dates: start: 20150811
  22. GENTACIN [Concomitant]
     Active Substance: GENTAMICIN SULFATE
     Indication: PARONYCHIA
     Route: 065
     Dates: start: 20151219
  23. SODIUM FERROUS CITRATE [Concomitant]
     Active Substance: SODIUM FERROUS CITRATE
     Indication: ANAEMIA
     Route: 065
     Dates: start: 20160121
  24. TRASTUZUMAB [Suspect]
     Active Substance: TRASTUZUMAB
     Indication: HER-2 POSITIVE BREAST CANCER
     Dosage: LOADING DOSE
     Route: 042
     Dates: start: 20150701
  25. DECADRON [Concomitant]
     Active Substance: DEXAMETHASONE
     Indication: PREMEDICATION
     Route: 065
     Dates: start: 20150721
  26. RINDERON V [Concomitant]
     Active Substance: BETAMETHASONE VALERATE
     Indication: RASH
     Route: 065
     Dates: start: 20150730
  27. JUZENTAIHOTO [Concomitant]
     Indication: MALAISE
     Route: 065
     Dates: start: 20150702
  28. AZUNOL [Concomitant]
     Active Substance: SODIUM GUALENATE
     Indication: DERMATITIS
     Route: 065
     Dates: start: 20150730, end: 20151123
  29. TRASTUZUMAB [Suspect]
     Active Substance: TRASTUZUMAB
     Dosage: MOST RECENT DOSE PRIOR TO SERIOUS ADVERSE EVENT: 15/DEC/2015
     Route: 042
  30. ALLELOCK [Concomitant]
     Active Substance: OLOPATADINE HYDROCHLORIDE
     Indication: RASH
     Route: 065
     Dates: start: 20150730
  31. DOCETAXEL. [Suspect]
     Active Substance: DOCETAXEL
     Indication: HER-2 POSITIVE BREAST CANCER
     Route: 042
     Dates: start: 20150722
  32. NERIPROCT [Concomitant]
     Indication: HAEMORRHOIDS
     Route: 065
     Dates: start: 20150514
  33. REBAMIPIDE [Concomitant]
     Active Substance: REBAMIPIDE
     Indication: GASTRITIS PROPHYLAXIS
     Route: 065
     Dates: start: 20150728
  34. LEVOFLOXACIN. [Concomitant]
     Active Substance: LEVOFLOXACIN
     Indication: PYREXIA
     Route: 065
     Dates: start: 20150930, end: 20151001

REACTIONS (2)
  - Duodenal ulcer haemorrhage [Recovered/Resolved]
  - Duodenal ulcer haemorrhage [Recovered/Resolved]

NARRATIVE: CASE EVENT DATE: 20151029
